FAERS Safety Report 23483140 (Version 4)
Quarter: 2024Q1

REPORT INFORMATION
  Report Type: Spontaneous
  Country: US (occurrence: US)
  Receive Date: 20240205
  Receipt Date: 20240320
  Transmission Date: 20240410
  Serious: No
  Sender: FDA-Public Use
  Company Number: US-PFIZER INC-202400030056

PATIENT
  Age: 73 Year
  Sex: Female

DRUGS (1)
  1. PAXLOVID [Suspect]
     Active Substance: NIRMATRELVIR\RITONAVIR
     Indication: COVID-19 treatment
     Dosage: 300MG NIRMATRELVIR (2-150MG TABLETS) + 1-100MG RITONAVIR, 3 TABLETS TAKEN TOGETHER 2X/DAY FOR 5 DAYS
     Route: 048
     Dates: start: 20240131, end: 20240204

REACTIONS (4)
  - Product taste abnormal [Unknown]
  - Nausea [Unknown]
  - Product packaging quantity issue [Unknown]
  - Poor quality product administered [Unknown]

NARRATIVE: CASE EVENT DATE: 20240131
